FAERS Safety Report 6035651-4 (Version None)
Quarter: 2009Q1

REPORT INFORMATION
  Report Type: 
  Country: None (occurrence: None)
  Receive Date: 20090113
  Receipt Date: 20090107
  Transmission Date: 20090719
  Serious: Yes (Other)
  Sender: FDA-Public Use
  Company Number: PHHY2008US21082

PATIENT
  Sex: Female

DRUGS (1)
  1. BACLOFEN [Suspect]
     Indication: MUSCLE SPASTICITY
     Route: 037

REACTIONS (6)
  - DRUG INEFFECTIVE [None]
  - HYPERTONIA [None]
  - MUSCLE SPASTICITY [None]
  - PRURITUS [None]
  - PYREXIA [None]
  - URINARY TRACT INFECTION [None]
